FAERS Safety Report 17904359 (Version 1)
Quarter: 2020Q2

REPORT INFORMATION
  Report Type: Spontaneous
  Country: US (occurrence: US)
  Receive Date: 20200616
  Receipt Date: 20200616
  Transmission Date: 20200714
  Serious: Yes (Hospitalization)
  Sender: FDA-Public Use
  Company Number: US-TEVA-2020-US-1509965

PATIENT
  Age: 66 Year
  Sex: Male

DRUGS (6)
  1. PEMBROLIZUMAB. [Suspect]
     Active Substance: PEMBROLIZUMAB
     Indication: METASTATIC MALIGNANT MELANOMA
     Route: 065
  2. IPILIMUMAB [Concomitant]
     Active Substance: IPILIMUMAB
     Indication: METASTATIC MALIGNANT MELANOMA
     Route: 065
  3. ANTABUSE [Suspect]
     Active Substance: DISULFIRAM
     Indication: METASTATIC MALIGNANT MELANOMA
     Dosage: 250 MILLIGRAM DAILY; HE SELF-ADMINISTERED DISULFIRAM 250 MG DAILY WITH OCCASIONAL COPPER SUPPLEMENTA
     Route: 065
  4. ANTABUSE [Suspect]
     Active Substance: DISULFIRAM
     Dosage: 500 MILLIGRAM DAILY;
     Route: 065
  5. COPPER [Suspect]
     Active Substance: COPPER
     Indication: METASTATIC MALIGNANT MELANOMA
     Dosage: HE SELF-ADMINISTERED DISULFIRAM WITH OCCASIONAL COPPER SUPPLEMENTATION
     Route: 065
  6. INTERFERON-A 2B [Suspect]
     Active Substance: INTERFERON ALFA-2B
     Indication: METASTATIC MALIGNANT MELANOMA
     Dosage: HIGH DOSE
     Route: 065

REACTIONS (6)
  - Posterior reversible encephalopathy syndrome [Recovering/Resolving]
  - Choking [Recovering/Resolving]
  - Fatigue [Unknown]
  - Toxicity to various agents [Recovering/Resolving]
  - Off label use [Unknown]
  - Hypertension [Recovered/Resolved]
